FAERS Safety Report 5152443-9 (Version None)
Quarter: 2006Q4

REPORT INFORMATION
  Report Type: 
  Country: None (occurrence: None)
  Receive Date: 20061109
  Receipt Date: 20061030
  Transmission Date: 20070319
  Serious: Yes (Hospitalization, Other)
  Sender: FDA-Public Use
  Company Number: 2006-02677

PATIENT
  Age: 70 Year
  Sex: Male
  Weight: 78 kg

DRUGS (15)
  1. VELCADE [Suspect]
     Indication: MULTIPLE MYELOMA
     Dosage: 1.30 MG/M2, INTRAVENOUS
     Route: 042
     Dates: start: 20060731, end: 20061006
  2. MELPHALAN (MELPHALAN) VIAL [Suspect]
     Indication: MULTIPLE MYELOMA
     Dosage: 7.50 MG/M2, INTRAVENOUS
     Route: 042
     Dates: start: 20060801, end: 20060926
  3. DOCUSATE (DOCUSATE) [Concomitant]
  4. SENNA (SEENA) [Concomitant]
  5. MOVICOL (SODIUM BICARBONATE, SODIUM CHLORIDE, MACROGOL, POTASSIUM CHLO [Concomitant]
  6. LACTULOSE [Concomitant]
  7. FLEET ENEMA (SODIUM PHOSPHATE DIBASIC, SODIUM PHOSPHATE) [Concomitant]
  8. ENEMAS [Concomitant]
  9. CLODRONATE DISODIUM            (CLODRONATE DISODIUM) [Concomitant]
  10. CEFUROXIME [Concomitant]
  11. METRONIDAZOLE [Concomitant]
  12. MORPHINE SULFATE [Concomitant]
  13. ORAMORPH SR [Concomitant]
  14. ACETAMINOPHEN [Concomitant]
  15. DICLOFENAC SODIUM [Concomitant]

REACTIONS (1)
  - PERIANAL ABSCESS [None]
